FAERS Safety Report 20677673 (Version 1)
Quarter: 2022Q2

REPORT INFORMATION
  Report Type: Spontaneous
  Country: CN (occurrence: CN)
  Receive Date: 20220406
  Receipt Date: 20220406
  Transmission Date: 20220721
  Serious: Yes (Other)
  Sender: FDA-Public Use
  Company Number: CN-AMGEN-CHNSP2022056106

PATIENT
  Age: 26 Year
  Sex: Male

DRUGS (2)
  1. BLINATUMOMAB [Suspect]
     Active Substance: BLINATUMOMAB
     Indication: Acute lymphocytic leukaemia
     Dosage: UNK
     Route: 065
  2. RUXOLITINIB [Concomitant]
     Active Substance: RUXOLITINIB

REACTIONS (16)
  - Hypokalaemia [Unknown]
  - Neutropenia [Recovered/Resolved]
  - Cytokine release syndrome [Recovering/Resolving]
  - Anaemia [Unknown]
  - Infection [Unknown]
  - Thrombocytopenia [Unknown]
  - B-cell aplasia [Unknown]
  - Therapy non-responder [Unknown]
  - Pyrexia [Unknown]
  - Myalgia [Unknown]
  - Bone pain [Unknown]
  - Hypotension [Unknown]
  - Blood bilirubin increased [Unknown]
  - Hypocalcaemia [Unknown]
  - Hypoalbuminaemia [Unknown]
  - Activated partial thromboplastin time prolonged [Unknown]
